APPROVED DRUG PRODUCT: TRIAMTERENE AND HYDROCHLOROTHIAZIDE
Active Ingredient: HYDROCHLOROTHIAZIDE; TRIAMTERENE
Strength: 25MG;37.5MG
Dosage Form/Route: CAPSULE;ORAL
Application: A074821 | Product #001 | TE Code: AB
Applicant: SANDOZ INC
Approved: Jun 5, 1997 | RLD: No | RS: Yes | Type: RX